FAERS Safety Report 25746793 (Version 1)
Quarter: 2025Q3

REPORT INFORMATION
  Report Type: Other
  Country: EU (occurrence: EU)
  Receive Date: 20250901
  Receipt Date: 20250901
  Transmission Date: 20251021
  Serious: Yes (Other)
  Sender: OMNIVIUM PHARMACEUTICALS LLC
  Company Number: EU-Omnivium Pharmaceuticals LLC-2183566

PATIENT
  Age: 58 Year
  Sex: Male

DRUGS (2)
  1. NUMBRINO [Suspect]
     Active Substance: COCAINE HYDROCHLORIDE
     Indication: Product used for unknown indication
  2. METFORMIN [Suspect]
     Active Substance: METFORMIN HYDROCHLORIDE

REACTIONS (21)
  - Distributive shock [Unknown]
  - Substance use [Unknown]
  - Bradyphrenia [Unknown]
  - Metabolic acidosis [Unknown]
  - Hyperlactacidaemia [Unknown]
  - Balance disorder [Unknown]
  - Language disorder [Unknown]
  - Leukocytosis [Unknown]
  - Tachypnoea [Unknown]
  - Breath odour [Unknown]
  - Hypoperfusion [Unknown]
  - Hypotension [Unknown]
  - Slow response to stimuli [Unknown]
  - Somnolence [Unknown]
  - Dysarthria [Unknown]
  - Acute kidney injury [Unknown]
  - Unresponsive to stimuli [Unknown]
  - Lactic acidosis [Unknown]
  - Hyperkalaemia [Unknown]
  - Toxicity to various agents [Unknown]
  - Multiple organ dysfunction syndrome [Unknown]
